FAERS Safety Report 8132002-6 (Version None)
Quarter: 2012Q1

REPORT INFORMATION
  Report Type: 
  Country: None (occurrence: None)
  Receive Date: 20120208
  Receipt Date: 20120125
  Transmission Date: 20120608
  Serious: Yes (Hospitalization)
  Sender: FDA-Public Use
  Company Number: 2012HGS-003148

PATIENT
  Age: 37 Year
  Sex: Female
  Weight: 58.9676 kg

DRUGS (8)
  1. DURAGESIC-100 [Concomitant]
  2. BENLYSTA [Suspect]
     Indication: SYSTEMIC LUPUS ERYTHEMATOSUS
     Dosage: 568 MG, 1 IN 28 D, INTRAVENOUS
     Route: 042
     Dates: start: 20120109
  3. ZANTAC [Concomitant]
  4. PLAQUENIL [Concomitant]
  5. OMEGA-3 (OMEGA-3 TRIGLYCERIDES) [Concomitant]
  6. PRILOSEC [Concomitant]
  7. PREDNISONE TAB [Concomitant]
  8. ASCORBIC ACID [Concomitant]

REACTIONS (7)
  - PROTEIN URINE PRESENT [None]
  - GENERALISED OEDEMA [None]
  - FEELING ABNORMAL [None]
  - ASTHENIA [None]
  - PAIN [None]
  - JOINT SWELLING [None]
  - CATATONIA [None]
